FAERS Safety Report 4336202-2 (Version None)
Quarter: 2004Q2

REPORT INFORMATION
  Report Type: 
  Country: None (occurrence: None)
  Receive Date: 20040407
  Receipt Date: 20040203
  Transmission Date: 20050107
  Serious: Yes (Hospitalization)
  Sender: FDA-Public Use
  Company Number: A02200400624

PATIENT
  Age: 68 Year
  Sex: Female

DRUGS (6)
  1. ARIXTRA [Suspect]
     Indication: DEEP VENOUS THROMBOSIS PROPHYLAXIS
     Dosage: 2.5 MG OD
     Route: 058
     Dates: start: 20040128, end: 20040129
  2. ARIXTRA [Suspect]
     Indication: HIP ARTHROPLASTY
     Dosage: 2.5 MG OD
     Route: 058
     Dates: start: 20040128, end: 20040129
  3. PROFENID ^RHONE-POULENC^ - (KETOPROFEN) - SOLUTION - 100 MG [Suspect]
     Indication: PAIN PROPHYLAXIS
     Dosage: 100 MG TID; INTRAVENOUS NOS
     Route: 042
     Dates: start: 20040128, end: 20040129
  4. ACUPAN - (NEFOPAM HYDROCHLORIDE) - SOLUTION - 20 MG [Suspect]
     Indication: PAIN PROPHYLAXIS
     Dosage: 60 MG
     Route: 041
     Dates: start: 20040128, end: 20040129
  5. MORPHINE [Concomitant]
  6. ACETAMINOPHEN [Concomitant]

REACTIONS (3)
  - ANAEMIA [None]
  - GASTRITIS EROSIVE [None]
  - GASTROINTESTINAL HAEMORRHAGE [None]
